FAERS Safety Report 4707876-9 (Version None)
Quarter: 2005Q2

REPORT INFORMATION
  Report Type: 
  Country: None (occurrence: None)
  Receive Date: 20050629
  Receipt Date: 20050315
  Transmission Date: 20051028
  Serious: No
  Sender: FDA-Public Use
  Company Number: 05P-163-0294388-00

PATIENT
  Age: 66 Year
  Sex: Female
  Weight: 47.6277 kg

DRUGS (5)
  1. HUMIRA [Suspect]
     Indication: RHEUMATOID ARTHRITIS
     Dosage: 40 MG, 1 IN 2 WK, SUBCUTANEOUS
     Route: 058
     Dates: start: 20040801
  2. FOLIC ACID [Concomitant]
  3. ERGOCALCIFEROL [Concomitant]
  4. MULTIVITAMIN [Concomitant]
  5. CALCIUM + D [Concomitant]

REACTIONS (4)
  - BONE PAIN [None]
  - FEELING COLD [None]
  - HUNGER [None]
  - WEIGHT INCREASED [None]
